FAERS Safety Report 7626012-2 (Version None)
Quarter: 2011Q3

REPORT INFORMATION
  Report Type: 
  Country: None (occurrence: None)
  Receive Date: 20110721
  Receipt Date: 20110718
  Transmission Date: 20111222
  Serious: No
  Sender: FDA-Public Use
  Company Number: US-TEVA-291196USA

PATIENT
  Sex: Female
  Weight: 72.64 kg

DRUGS (4)
  1. SOMA [Concomitant]
     Indication: BACK PAIN
  2. PLAN B ONE-STEP [Suspect]
     Indication: POST COITAL CONTRACEPTION
     Dosage: 1.5 MILLIGRAM;
     Route: 048
     Dates: start: 20110716, end: 20110716
  3. ALLEGRA [Concomitant]
     Indication: HYPERSENSITIVITY
  4. CYMBALTA [Concomitant]
     Indication: DEPRESSION

REACTIONS (2)
  - VOMITING [None]
  - PELVIC PAIN [None]
